FAERS Safety Report 5201788-2 (Version None)
Quarter: 2006Q4

REPORT INFORMATION
  Report Type: 
  Country: None (occurrence: None)
  Receive Date: 20061002
  Receipt Date: 20050930
  Transmission Date: 20070319
  Serious: Yes (Other)
  Sender: FDA-Public Use
  Company Number: 2005VX000558

PATIENT
  Age: 74 Year
  Sex: Male

DRUGS (1)
  1. EFUDEX [Suspect]
     Indication: ACTINIC KERATOSIS
     Dosage: 5 PCT;BID;TOP
     Route: 061
     Dates: start: 19781101

REACTIONS (5)
  - CONJUNCTIVITIS [None]
  - CORNEAL EROSION [None]
  - DERMATITIS [None]
  - ECTROPION [None]
  - PUNCTATE KERATITIS [None]
